FAERS Safety Report 20333088 (Version 1)
Quarter: 2022Q1

REPORT INFORMATION
  Report Type: Spontaneous
  Country: CN (occurrence: CN)
  Receive Date: 20220113
  Receipt Date: 20220113
  Transmission Date: 20220423
  Serious: Yes (Hospitalization, Other)
  Sender: FDA-Public Use
  Company Number: CN-SA-SAC20220110001129

PATIENT
  Age: 59 Year
  Sex: Female
  Weight: 47 kg

DRUGS (4)
  1. TAXOTERE [Suspect]
     Active Substance: DOCETAXEL
     Indication: Gastric cancer
     Dosage: 60 MG, 1X
     Route: 041
     Dates: start: 20211125, end: 20211125
  2. OXALIPLATIN [Suspect]
     Active Substance: OXALIPLATIN
     Indication: Gastric cancer
     Dosage: 130 MG, 1X
     Route: 041
     Dates: start: 20211125, end: 20211125
  3. FLUOROURACIL [Suspect]
     Active Substance: FLUOROURACIL
     Indication: Gastric cancer
     Dosage: ROUTE OF ADMINISTRATION: PUMP INJECTION
     Dates: start: 20211125, end: 20211125
  4. NIVOLUMAB [Suspect]
     Active Substance: NIVOLUMAB
     Indication: Gastric cancer
     Dosage: 200 MG, 1X
     Route: 041
     Dates: start: 20211125, end: 20211125

REACTIONS (2)
  - Agranulocytosis [Recovered/Resolved]
  - White blood cell count decreased [Recovered/Resolved]

NARRATIVE: CASE EVENT DATE: 20211129
